FAERS Safety Report 4523141-7 (Version None)
Quarter: 2004Q4

REPORT INFORMATION
  Report Type: 
  Country: None (occurrence: None)
  Receive Date: 20041208
  Receipt Date: 20041122
  Transmission Date: 20050328
  Serious: Yes (Hospitalization, Other)
  Sender: FDA-Public Use
  Company Number: 8008186

PATIENT
  Age: 36 Year
  Sex: Male
  Weight: 90 kg

DRUGS (7)
  1. LEVETIRACETAM [Suspect]
     Indication: EPILEPSY
     Dosage: 1 G/D
     Dates: start: 20041007, end: 20041012
  2. LEVETIRACETAM [Suspect]
     Indication: EPILEPSY
     Dosage: 1.5 G/D
     Dates: start: 20041013
  3. CARBAMAZEPINE [Concomitant]
  4. LORAZEPAM [Concomitant]
  5. DEXAMETHASON [Concomitant]
  6. RANITIDINE [Concomitant]
  7. MANNITOL [Concomitant]

REACTIONS (1)
  - DEEP VEIN THROMBOSIS [None]
